FAERS Safety Report 12055664 (Version 2)
Quarter: 2016Q1

REPORT INFORMATION
  Report Type: Spontaneous
  Country: US (occurrence: US)
  Receive Date: 20160209
  Receipt Date: 20160212
  Transmission Date: 20160526
  Serious: No
  Sender: FDA-Public Use
  Company Number: US-BIOGEN-2016BI00183444

PATIENT
  Sex: Female

DRUGS (1)
  1. TYSABRI [Suspect]
     Active Substance: NATALIZUMAB
     Indication: MULTIPLE SCLEROSIS
     Dates: start: 20141009

REACTIONS (5)
  - Infusion site bruising [Unknown]
  - Contusion [Unknown]
  - Fatigue [Unknown]
  - Sluggishness [Unknown]
  - Poor venous access [Unknown]
